FAERS Safety Report 9401498 (Version 1)
Quarter: 2013Q3

REPORT INFORMATION
  Report Type: Spontaneous
  Country: US (occurrence: US)
  Receive Date: 20130716
  Receipt Date: 20130716
  Transmission Date: 20140515
  Serious: No
  Sender: FDA-Public Use
  Company Number: US-009507513-1307USA005754

PATIENT
  Age: 4 Year
  Sex: Male

DRUGS (1)
  1. COPPERTONE KIDS WACKY FOAM SPF 75 [Suspect]
     Indication: PRODUCT USED FOR UNKNOWN INDICATION
     Dosage: UNK, UNKNOWN
     Route: 061
     Dates: start: 20130701

REACTIONS (2)
  - Eye burns [Unknown]
  - Accidental exposure to product by child [Unknown]
